FAERS Safety Report 21161062 (Version 8)
Quarter: 2024Q4

REPORT INFORMATION
  Report Type: Spontaneous
  Country: CA (occurrence: CA)
  Receive Date: 20220802
  Receipt Date: 20241230
  Transmission Date: 20250115
  Serious: Yes (Other)
  Sender: PFIZER
  Company Number: CA-PFIZER INC-202200629805

PATIENT
  Age: 28 Year
  Sex: Female
  Weight: 144.9 kg

DRUGS (2)
  1. ABRILADA [Suspect]
     Active Substance: ADALIMUMAB-AFZB
     Indication: Hidradenitis
     Dosage: 160 MG WEEK 0 (80MG APPLIED IN CLINIC AND 80MG APPLIED AT HOME), 80 MG WEEK 2, 40 MG EVERY WEEK STAR
     Route: 058
     Dates: start: 20220425
  2. ABRILADA [Suspect]
     Active Substance: ADALIMUMAB-AFZB
     Dosage: 1 DF,WK0: 160 MG, WK2: 80MG, THEN 40MG EVERY OTHER WK STARTING WK4.
     Route: 058

REACTIONS (5)
  - Spina bifida [Not Recovered/Not Resolved]
  - Condition aggravated [Not Recovered/Not Resolved]
  - Procedural pain [Unknown]
  - Maternal exposure during pregnancy [Unknown]
  - Incorrect dose administered [Unknown]

NARRATIVE: CASE EVENT DATE: 20220101
